FAERS Safety Report 10691282 (Version 2)
Quarter: 2015Q1

REPORT INFORMATION
  Report Type: Spontaneous
  Country: DE (occurrence: DE)
  Receive Date: 20150105
  Receipt Date: 20150105
  Transmission Date: 20150720
  Serious: Yes (Hospitalization)
  Sender: FDA-Public Use
  Company Number: DE-PFIZER INC-2014330172

PATIENT
  Age: 85 Year
  Sex: Female

DRUGS (3)
  1. PROPOFOL ^FRESENIUS^ [Concomitant]
     Active Substance: PROPOFOL
     Indication: EMBOLISM
     Dosage: 20 MG, 1X/DAY
     Route: 042
  2. ZYVOXID [Suspect]
     Active Substance: LINEZOLID
     Indication: ANTIBIOTIC THERAPY
     Dosage: 600 MG, 2X/DAY
     Route: 042
  3. MIDAZOLAM [Concomitant]
     Active Substance: MIDAZOLAM\MIDAZOLAM HYDROCHLORIDE
     Indication: EMBOLISM
     Dosage: 1.5 MG, 1X/DAY
     Route: 042

REACTIONS (4)
  - Pain [Recovered/Resolved]
  - Injection site warmth [Unknown]
  - Injection site pain [Recovered/Resolved]
  - Injection site swelling [Recovered/Resolved]

NARRATIVE: CASE EVENT DATE: 20141201
